FAERS Safety Report 13578583 (Version 1)
Quarter: 2017Q2

REPORT INFORMATION
  Report Type: Spontaneous
  Country: US (occurrence: US)
  Receive Date: 20170524
  Receipt Date: 20170524
  Transmission Date: 20170830
  Serious: No
  Sender: FDA-Public Use
  Company Number: US-SUNOVION-2017SUN000180

PATIENT
  Sex: Male

DRUGS (10)
  1. LATUDA [Suspect]
     Active Substance: LURASIDONE HYDROCHLORIDE
     Indication: DEPRESSION
     Route: 048
  2. ZYPREXA [Concomitant]
     Active Substance: OLANZAPINE
  3. SAPHRIS [Concomitant]
     Active Substance: ASENAPINE MALEATE
  4. LOXAPINE. [Concomitant]
     Active Substance: LOXAPINE
     Dosage: 25 MG, UNK
  5. OLANZAPINE. [Concomitant]
     Active Substance: OLANZAPINE
  6. FANAPT [Concomitant]
     Active Substance: ILOPERIDONE
  7. ADDERALL [Concomitant]
     Active Substance: AMPHETAMINE ASPARTATE\AMPHETAMINE SULFATE\DEXTROAMPHETAMINE SACCHARATE\DEXTROAMPHETAMINE SULFATE
  8. LOXAPINE. [Concomitant]
     Active Substance: LOXAPINE
     Indication: PSYCHOTIC DISORDER
     Dosage: 5 MG, UNK
  9. LOXAPINE. [Concomitant]
     Active Substance: LOXAPINE
     Dosage: 10 MG, UNK
  10. ABILIFY [Concomitant]
     Active Substance: ARIPIPRAZOLE
     Dosage: 5 MG, UNK

REACTIONS (3)
  - Akathisia [Unknown]
  - Off label use [Recovered/Resolved]
  - Depression [Recovered/Resolved]
